FAERS Safety Report 25045675 (Version 2)
Quarter: 2025Q2

REPORT INFORMATION
  Report Type: Spontaneous
  Country: US (occurrence: US)
  Receive Date: 20250306
  Receipt Date: 20250427
  Transmission Date: 20250717
  Serious: Yes (Other)
  Sender: BRISTOL-MYERS SQUIBB COMPANY
  Company Number: US-BRISTOL-MYERS SQUIBB COMPANY-2025-031760

PATIENT
  Age: 75 Year
  Sex: Female

DRUGS (3)
  1. POMALYST [Suspect]
     Active Substance: POMALIDOMIDE
     Indication: Plasma cell myeloma
     Dosage: TAKE 1 CAPSULE (2MG) BY MOUTH ONCE DAILY ON DAYS 1-21 OF A 28 DAY CYCLE
     Route: 048
  2. POMALYST [Suspect]
     Active Substance: POMALIDOMIDE
     Dosage: TAKE 1 CAPSULE (2MG) BY MOUTH ONCE DAILY ON DAYS 1-21 OF A 28 DAY CYCLE
     Route: 048
  3. POMALYST [Suspect]
     Active Substance: POMALIDOMIDE
     Dosage: TAKE 1 CAPSULE (2MG) BY MOUTH ONCE DAILY ON DAYS 1-21 OF A 28 DAY CYCLE
     Route: 048

REACTIONS (5)
  - Jaw disorder [Recovering/Resolving]
  - Product supply issue [Unknown]
  - Therapy interrupted [Unknown]
  - Product distribution issue [Unknown]
  - Product dispensing issue [Unknown]
